FAERS Safety Report 12520182 (Version 1)
Quarter: 2016Q2

REPORT INFORMATION
  Report Type: Spontaneous
  Country: US (occurrence: US)
  Receive Date: 20160630
  Receipt Date: 20160630
  Transmission Date: 20160815
  Serious: No
  Sender: FDA-Public Use
  Company Number: US-TRIS PHARMA, INC.-1054463

PATIENT
  Age: 73 Year
  Sex: Male
  Weight: 93 kg

DRUGS (4)
  1. UNKNOWN BLOOD PRESSURE AND CHOLESTEROL MEDICINE [Concomitant]
  2. MUCINEX [Concomitant]
     Active Substance: GUAIFENESIN
  3. ROBITUSSIN DM MAX COUGH CONGESTION [Concomitant]
     Active Substance: DEXTROMETHORPHAN HYDROBROMIDE\GUAIFENESIN
  4. DEXTROMETHORPHAN POLISTIREX ER OS 6 MG/ML [Suspect]
     Active Substance: DEXTROMETHORPHAN HYDROBROMIDE
     Indication: COUGH
     Dates: start: 20151105, end: 20151108

REACTIONS (1)
  - Drug ineffective [None]
